FAERS Safety Report 20990938 (Version 2)
Quarter: 2022Q3

REPORT INFORMATION
  Report Type: Report from Study
  Country: AT (occurrence: AT)
  Receive Date: 20220622
  Receipt Date: 20220715
  Transmission Date: 20221027
  Serious: Yes (Other)
  Sender: FDA-Public Use
  Company Number: AT-CELGENE-AUT-20211104542

PATIENT
  Age: 83 Year
  Sex: Male

DRUGS (2)
  1. DEXAMETHASONE [Suspect]
     Active Substance: DEXAMETHASONE
     Indication: Plasma cell myeloma
     Dosage: UNIT DOSE : 8 MG , DURATION : 3 YEARS
     Route: 065
     Dates: start: 20181008, end: 20210906
  2. REVLIMID [Suspect]
     Active Substance: LENALIDOMIDE
     Indication: Plasma cell myeloma
     Dosage: UNIT DOSE : 25 MG , DURATION : 3 YEARS
     Route: 048
     Dates: start: 20181008, end: 20210912

REACTIONS (1)
  - Neutropenia [Recovered/Resolved]

NARRATIVE: CASE EVENT DATE: 20210914
